FAERS Safety Report 9845024 (Version 1)
Quarter: 2014Q1

REPORT INFORMATION
  Report Type: Spontaneous
  Country: OM (occurrence: None)
  Receive Date: 20140122
  Receipt Date: 20140122
  Transmission Date: 20141002
  Serious: Yes (Other)
  Sender: FDA-Public Use
  Company Number: UTC-043105

PATIENT
  Age: 37 Year
  Sex: Female
  Weight: 76 kg

DRUGS (5)
  1. REMODULIN [Suspect]
     Indication: PULMONARY ARTERIAL HYPERTENSION
     Dosage: (0.02 UG/KG, 1 IN 1 MIN)
     Route: 058
     Dates: start: 20130826
  2. TRACLEER (BOSENTAN) (UNKNOWN) [Concomitant]
  3. ALADIN (SILDENAFIL) (UNKNOWN) [Concomitant]
  4. EMLA (EMLA/00675501/) (UNKNOWN) [Concomitant]
  5. CETIRIZINE (UNKNOWN) [Concomitant]

REACTIONS (3)
  - Arthralgia [None]
  - Headache [None]
  - Drug ineffective [None]
